FAERS Safety Report 22288590 (Version 1)
Quarter: 2023Q2

REPORT INFORMATION
  Report Type: Spontaneous
  Country: DE (occurrence: DE)
  Receive Date: 20230505
  Receipt Date: 20230505
  Transmission Date: 20230721
  Serious: Yes (Other)
  Sender: FDA-Public Use
  Company Number: DE-TEVA-2023-DE-2881885

PATIENT
  Age: 66 Year
  Sex: Female
  Weight: 63 kg

DRUGS (5)
  1. DULOXETINE HYDROCHLORIDE [Suspect]
     Active Substance: DULOXETINE HYDROCHLORIDE
     Indication: Product used for unknown indication
     Dosage: ENTERIC-COATED HARD CAPSULES, 60MG, 1 TABLET DAILY
     Route: 065
     Dates: start: 202210
  2. IBUPROFEN [Suspect]
     Active Substance: IBUPROFEN
     Indication: Product used for unknown indication
     Dosage: 1 TABLET DAILY
     Route: 065
     Dates: start: 20230128, end: 20230314
  3. AstraZeneca (Vaxzevria) [Concomitant]
     Indication: Product used for unknown indication
     Route: 065
     Dates: start: 20210421, end: 20210421
  4. AstraZeneca (Vaxzevria) [Concomitant]
     Route: 065
     Dates: start: 20210714, end: 20210714
  5. Pfizer BioNTech (Comirnaty) [Concomitant]
     Indication: Product used for unknown indication
     Route: 065
     Dates: start: 20211221, end: 20211221

REACTIONS (22)
  - Dermatitis exfoliative [Unknown]
  - Palpitations [Unknown]
  - Tremor [Unknown]
  - Muscle spasms [Unknown]
  - Dry mouth [Unknown]
  - Polydipsia [Recovered/Resolved]
  - Gout [Unknown]
  - Sleep disorder [Unknown]
  - Decreased appetite [Unknown]
  - Weight decreased [Unknown]
  - Balance disorder [Unknown]
  - Cold sweat [Recovered/Resolved]
  - Feeling cold [Unknown]
  - Chest discomfort [Unknown]
  - Abdominal discomfort [Recovered/Resolved]
  - Tinnitus [Unknown]
  - Fatigue [Unknown]
  - Derealisation [Recovered/Resolved]
  - Nausea [Unknown]
  - Depressed mood [Unknown]
  - Confusional state [Unknown]
  - Negative thoughts [Recovered/Resolved]

NARRATIVE: CASE EVENT DATE: 20221001
